FAERS Safety Report 15331036 (Version 2)
Quarter: 2018Q4

REPORT INFORMATION
  Report Type: Spontaneous
  Country: JP (occurrence: JP)
  Receive Date: 20180829
  Receipt Date: 20181217
  Transmission Date: 20190204
  Serious: Yes (Hospitalization, Other)
  Sender: FDA-Public Use
  Company Number: JP-PFIZER INC-2018342762

PATIENT
  Age: 72 Year
  Sex: Female

DRUGS (2)
  1. PREDONINE [PREDNISOLONE ACETATE] [Concomitant]
  2. RHEUMATREX [Suspect]
     Active Substance: METHOTREXATE SODIUM
     Indication: RHEUMATOID ARTHRITIS
     Dosage: 4 MG, WEEKLY
     Route: 048
     Dates: start: 20180413, end: 20180806

REACTIONS (1)
  - Cervix carcinoma [Recovering/Resolving]

NARRATIVE: CASE EVENT DATE: 201807
